FAERS Safety Report 23999868 (Version 4)
Quarter: 2024Q3

REPORT INFORMATION
  Report Type: Report from Study
  Country: US (occurrence: US)
  Receive Date: 20240621
  Receipt Date: 20240830
  Transmission Date: 20241017
  Serious: Yes (Hospitalization, Other)
  Sender: ACADIA PHARMACEUTICALS
  Company Number: US-ACADIA PHARMACEUTICALS INC.-ACA-2024-PIM-002605

PATIENT
  Age: 74 Year
  Sex: Female

DRUGS (13)
  1. NUPLAZID [Suspect]
     Active Substance: PIMAVANSERIN TARTRATE
     Indication: Parkinson^s disease
     Dosage: 34 MILLIGRAM, QD
     Route: 048
     Dates: start: 20240512
  2. NUPLAZID [Suspect]
     Active Substance: PIMAVANSERIN TARTRATE
     Indication: Parkinson^s disease psychosis
     Dosage: 34 MILLIGRAM, QD
     Route: 048
     Dates: end: 20240619
  3. ALPRAZOLAM [Concomitant]
     Active Substance: ALPRAZOLAM
     Dosage: 0.25 MG
  4. CLARITIN [Concomitant]
     Active Substance: LORATADINE
     Dosage: 10 MILLIGRAM
  5. LEVOTHYROXINE [Concomitant]
     Active Substance: LEVOTHYROXINE\LEVOTHYROXINE SODIUM
     Dosage: 0.025 MG (25 MCG)
  6. VITAMINS NOS [Concomitant]
     Active Substance: VITAMINS
  7. PRAMIPEXOLE [Concomitant]
     Active Substance: PRAMIPEXOLE\PRAMIPEXOLE DIHYDROCHLORIDE
     Dosage: 0.125 MG
  8. RYTARY [Concomitant]
     Active Substance: CARBIDOPA\LEVODOPA
     Dosage: 36.25-145 MG
  9. SERTRALINE [Concomitant]
     Active Substance: SERTRALINE HYDROCHLORIDE
     Dosage: 100 MILLIGRAM
  10. TYLENOL [Concomitant]
     Active Substance: ACETAMINOPHEN
     Dosage: 325 MILLIGRAM
  11. VITAMIN C [Concomitant]
     Active Substance: ASCORBIC ACID
     Dosage: 1000 MG
  12. CHOLECALCIFEROL [Concomitant]
     Active Substance: CHOLECALCIFEROL
     Dosage: 1000 INTERNATIONAL UNIT, SOFT GEL
  13. CLOZAPINE [Concomitant]
     Active Substance: CLOZAPINE

REACTIONS (11)
  - Unresponsive to stimuli [Recovered/Resolved]
  - Speech disorder [Recovered/Resolved]
  - Abnormal behaviour [Recovered/Resolved]
  - Blood pressure decreased [Recovered/Resolved]
  - Hallucination [Recovered/Resolved]
  - Inappropriate schedule of product administration [Recovered/Resolved]
  - Paranoia [Recovered/Resolved]
  - Delusion [Recovered/Resolved]
  - Condition aggravated [Recovered/Resolved]
  - Condition aggravated [Unknown]
  - Drug ineffective [Recovered/Resolved]

NARRATIVE: CASE EVENT DATE: 20240520
